FAERS Safety Report 24770373 (Version 1)
Quarter: 2024Q4

REPORT INFORMATION
  Report Type: Spontaneous
  Country: US (occurrence: US)
  Receive Date: 20241224
  Receipt Date: 20241224
  Transmission Date: 20250114
  Serious: No
  Sender: AMGEN
  Company Number: US-AMGEN-USASP2024250355

PATIENT
  Age: 58 Year
  Sex: Male

DRUGS (4)
  1. BEVACIZUMAB [Suspect]
     Active Substance: BEVACIZUMAB
     Indication: Radiation necrosis
     Dosage: UNK
     Route: 065
  2. PEMBROLIZUMAB [Concomitant]
     Active Substance: PEMBROLIZUMAB
     Indication: Metastases to meninges
  3. TEMOZOLOMIDE [Concomitant]
     Active Substance: TEMOZOLOMIDE
     Indication: Metastases to meninges
     Dosage: 6 CYCLES
  4. LOMUSTINE [Concomitant]
     Active Substance: LOMUSTINE
     Indication: Metastases to meninges
     Dosage: 3 CYCLES

REACTIONS (3)
  - Visual impairment [Unknown]
  - Off label use [Unknown]
  - Headache [Unknown]
